FAERS Safety Report 16031118 (Version 1)
Quarter: 2019Q1

REPORT INFORMATION
  Report Type: Spontaneous
  Country: US (occurrence: US)
  Receive Date: 20190304
  Receipt Date: 20190304
  Transmission Date: 20190418
  Serious: Yes (Hospitalization)
  Sender: FDA-Public Use
  Company Number: US-ANIPHARMA-2019-US-001971

PATIENT
  Age: 55 Year
  Sex: Female

DRUGS (5)
  1. QUETIAPINE. [Suspect]
     Active Substance: QUETIAPINE
     Indication: MENTAL DISORDER
     Dosage: 200 MG 3 TIMES DAILY; 50 MG AT BEDTIME
  2. LAMOTRIGINE. [Concomitant]
     Active Substance: LAMOTRIGINE
     Dosage: 250 MG AT BEDTIME
  3. HYDROXYZINE [Concomitant]
     Active Substance: HYDROXYZINE HYDROCHLORIDE
     Dosage: 25 MG TWICE DAILY
  4. AMITRIPTYLINE (NON-SPECIFIC) [Suspect]
     Active Substance: AMITRIPTYLINE
     Indication: MENTAL DISORDER
     Dosage: 25 MG AT BEDTIME
  5. RISPERIDONE. [Concomitant]
     Active Substance: RISPERIDONE
     Dosage: 50 MG EVERY 2 WEEKS
     Route: 030

REACTIONS (1)
  - Colitis ischaemic [Recovered/Resolved]
